FAERS Safety Report 7960861-6 (Version None)
Quarter: 2011Q4

REPORT INFORMATION
  Report Type: 
  Country: None (occurrence: None)
  Receive Date: 20111207
  Receipt Date: 20111128
  Transmission Date: 20120403
  Serious: Yes (Death, Other)
  Sender: FDA-Public Use
  Company Number: IL-ACCORD-011548

PATIENT

DRUGS (2)
  1. ETOPOSIDE [Suspect]
  2. CARBOPLATIN [Suspect]

REACTIONS (4)
  - TUMOUR LYSIS SYNDROME [None]
  - OFF LABEL USE [None]
  - RENAL FAILURE ACUTE [None]
  - PANCYTOPENIA [None]
